FAERS Safety Report 6195531-0 (Version None)
Quarter: 2009Q2

REPORT INFORMATION
  Report Type: 
  Country: None (occurrence: None)
  Receive Date: 20090519
  Receipt Date: 20090511
  Transmission Date: 20091009
  Serious: Yes (Other)
  Sender: FDA-Public Use
  Company Number: PHEH2009US04617

PATIENT
  Sex: Male

DRUGS (7)
  1. EXELON [Suspect]
     Dosage: 4.6 MG, UNK
     Route: 062
  2. RISPERIDONE [Concomitant]
  3. LORAZEPAM [Concomitant]
  4. DIURETICS [Concomitant]
  5. LASIX [Concomitant]
  6. METOLAZONE [Concomitant]
  7. ANTIHYPERTENSIVES [Concomitant]

REACTIONS (2)
  - ABNORMAL BEHAVIOUR [None]
  - AGGRESSION [None]
